FAERS Safety Report 12178720 (Version 1)
Quarter: 2016Q1

REPORT INFORMATION
  Report Type: Spontaneous
  Country: US (occurrence: None)
  Receive Date: 20160314
  Receipt Date: 20160314
  Transmission Date: 20160526
  Serious: Yes (Life-Threatening, Hospitalization)
  Sender: FDA-Public Use
  Company Number: None

PATIENT
  Age: 16 Year
  Sex: Male
  Weight: 79.38 kg

DRUGS (1)
  1. CLARAVIS [Suspect]
     Active Substance: ISOTRETINOIN
     Indication: ACNE
     Dosage: 3 ONCE DAILY TAKEN BY MOUTH?1.5 YRS VARIED TIMES
     Route: 048

REACTIONS (4)
  - Suicidal ideation [None]
  - Agitation [None]
  - Depression [None]
  - School refusal [None]

NARRATIVE: CASE EVENT DATE: 20160308
